FAERS Safety Report 8873225 (Version 2)
Quarter: 2012Q4

REPORT INFORMATION
  Report Type: 
  Country: US (occurrence: US)
  Receive Date: 20121029
  Receipt Date: 20121211
  Transmission Date: 20130627
  Serious: Yes (Hospitalization)
  Sender: FDA-Public Use
  Company Number: US-PFIZER INC-2012268718

PATIENT
  Age: 61 Year
  Sex: Female
  Weight: 76.19 kg

DRUGS (1)
  1. ATORVASTATIN CALCIUM [Suspect]
     Indication: BLOOD CHOLESTEROL INCREASED
     Dosage: 20 mg, daily
     Dates: start: 2012

REACTIONS (3)
  - Myocardial infarction [Unknown]
  - Stress [Unknown]
  - Anxiety [Unknown]
